FAERS Safety Report 8988611 (Version 2)
Quarter: 2013Q1

REPORT INFORMATION
  Report Type: Spontaneous
  Country: DK (occurrence: DK)
  Receive Date: 20121228
  Receipt Date: 20130318
  Transmission Date: 20140127
  Serious: Yes (Other)
  Sender: FDA-Public Use
  Company Number: DK-PFIZER INC-2012326409

PATIENT
  Age: 37 Year
  Sex: Female

DRUGS (3)
  1. EFEXOR DEPOT [Suspect]
     Indication: OBSESSIVE-COMPULSIVE DISORDER
     Dates: start: 200410, end: 201102
  2. EFEXOR DEPOT [Suspect]
     Indication: BIPOLAR DISORDER
  3. LAMICTAL [Concomitant]
     Indication: MANIA
     Dosage: UNK
     Dates: start: 200903

REACTIONS (8)
  - Mania [Unknown]
  - Road traffic accident [Unknown]
  - Impulsive behaviour [Unknown]
  - Alcohol abuse [Unknown]
  - Insomnia [Unknown]
  - High risk sexual behaviour [Unknown]
  - Economic problem [Unknown]
  - Off label use [Unknown]
